FAERS Safety Report 8927292 (Version 1)
Quarter: 2012Q4

REPORT INFORMATION
  Report Type: 
  Country: BR (occurrence: BR)
  Receive Date: 20121127
  Receipt Date: 20121127
  Transmission Date: 20130627
  Serious: Yes (Disabling)
  Sender: FDA-Public Use
  Company Number: BR-JNJFOC-20121112407

PATIENT
  Sex: Female

DRUGS (2)
  1. XARELTO [Suspect]
     Indication: ATRIAL FIBRILLATION
     Dosage: Taking half tablet of Xarelto 20 mg
     Route: 048
     Dates: start: 2011
  2. XARELTO [Suspect]
     Indication: CEREBROVASCULAR ACCIDENT PROPHYLAXIS
     Dosage: Taking half tablet of Xarelto 20 mg
     Route: 048
     Dates: start: 2011

REACTIONS (4)
  - Bedridden [Unknown]
  - Wrong technique in drug usage process [Unknown]
  - Feeling abnormal [Unknown]
  - Underdose [Unknown]
